FAERS Safety Report 14691254 (Version 2)
Quarter: 2018Q2

REPORT INFORMATION
  Report Type: Spontaneous
  Country: FR (occurrence: FR)
  Receive Date: 20180328
  Receipt Date: 20180501
  Transmission Date: 20180711
  Serious: Yes (Hospitalization, Other)
  Sender: FDA-Public Use
  Company Number: FR-BAUSCH-BL-2018-007460

PATIENT
  Age: 6 Year
  Sex: Male

DRUGS (34)
  1. CYTARABINE. [Suspect]
     Active Substance: CYTARABINE
     Indication: ACUTE LYMPHOCYTIC LEUKAEMIA
     Dosage: 63 MG, UNK
     Route: 042
     Dates: start: 20180127, end: 20180128
  2. 6-MERCAPTOPURINE MONOHYDRATE [Suspect]
     Active Substance: MERCAPTOPURINE
     Indication: ACUTE LYMPHOCYTIC LEUKAEMIA
     Dosage: 50 MG, UNK;
     Route: 048
     Dates: start: 20180116, end: 20180129
  3. PARACETAMOL [Concomitant]
     Active Substance: ACETAMINOPHEN
     Indication: ABDOMINAL PAIN
  4. MORPHINE [Concomitant]
     Active Substance: MORPHINE
     Indication: PAIN
  5. MORPHINE [Concomitant]
     Active Substance: MORPHINE
     Indication: ABDOMINAL PAIN
  6. SULFAMETHOXAZOLE AND TRIMETHOPRIM [Concomitant]
     Active Substance: SULFAMETHOXAZOLE\TRIMETHOPRIM
     Indication: ANTIBIOTIC PROPHYLAXIS
  7. SULFAMETHOXAZOLE AND TRIMETHOPRIM [Concomitant]
     Active Substance: SULFAMETHOXAZOLE\TRIMETHOPRIM
     Indication: ANTIBIOTIC PROPHYLAXIS
  8. VANCOMYCIN [Concomitant]
     Active Substance: VANCOMYCIN
     Indication: ANTIBIOTIC PROPHYLAXIS
  9. ESOMEPRAZOLE [Concomitant]
     Active Substance: ESOMEPRAZOLE
     Indication: ANTACID THERAPY
  10. AMITRIPTYLINE [Concomitant]
     Active Substance: AMITRIPTYLINE
     Indication: NEURALGIA
  11. METHOTREXATE. [Suspect]
     Active Substance: METHOTREXATE
     Indication: ACUTE LYMPHOCYTIC LEUKAEMIA
     Dosage: 12 MG, UNK
     Route: 037
     Dates: start: 20171218, end: 20180118
  12. ONCASPAR [Suspect]
     Active Substance: PEGASPARGASE
     Indication: ACUTE LYMPHOCYTIC LEUKAEMIA
     Route: 065
  13. PARACETAMOL [Concomitant]
     Active Substance: ACETAMINOPHEN
     Indication: PANCREATITIS
  14. GABAPENTIN. [Concomitant]
     Active Substance: GABAPENTIN
     Indication: NEURALGIA
  15. ANTITHROMBIN III [Concomitant]
     Active Substance: ANTITHROMBIN III HUMAN
     Indication: ANTITHROMBIN III DEFICIENCY
  16. ADRIAMYCIN [Suspect]
     Active Substance: DOXORUBICIN HYDROCHLORIDE
     Indication: ACUTE LYMPHOCYTIC LEUKAEMIA
     Dosage: 20.2 MG, UNK;
     Route: 042
     Dates: start: 20171215, end: 20180102
  17. NICARDIPINE [Concomitant]
     Active Substance: NICARDIPINE
     Indication: HYPERTENSION
  18. CYCLOPHOSPHAMIDE. [Suspect]
     Active Substance: CYCLOPHOSPHAMIDE
     Indication: ACUTE LYMPHOCYTIC LEUKAEMIA
     Dosage: 800 MG, UNK
     Route: 042
     Dates: start: 20180116, end: 20180116
  19. ONDANSETRON [Concomitant]
     Active Substance: ONDANSETRON
     Indication: PROPHYLAXIS
  20. LABETALOL [Concomitant]
     Active Substance: LABETALOL\LABETALOL HYDROCHLORIDE
     Indication: BLOOD PRESSURE INCREASED
  21. CYTARABINE. [Suspect]
     Active Substance: CYTARABINE
     Dosage: 60 MG, UNK
     Route: 042
     Dates: start: 20180118, end: 20180126
  22. CYTARABINE. [Suspect]
     Active Substance: CYTARABINE
     Dosage: 30 MG, UNK
     Route: 037
     Dates: start: 20171218, end: 20180118
  23. MORPHINE [Concomitant]
     Active Substance: MORPHINE
     Indication: PAIN
  24. TRIMEBUTINE [Concomitant]
     Active Substance: TRIMEBUTINE
     Indication: ABDOMINAL PAIN
  25. DEXAMETHASONE. [Suspect]
     Active Substance: DEXAMETHASONE
     Indication: ACUTE LYMPHOCYTIC LEUKAEMIA
     Dosage: 8 MG, UNK ; DRUG TREATMENT DURATION UNIT; DAYS
     Route: 048
     Dates: start: 20171215, end: 20180108
  26. HYDROCORTISONE. [Suspect]
     Active Substance: HYDROCORTISONE
     Indication: ACUTE LYMPHOCYTIC LEUKAEMIA
     Dosage: 15 MG, UNK; DAYS
     Route: 037
     Dates: start: 20171218, end: 20180118
  27. FUROSEMIDE. [Concomitant]
     Active Substance: FUROSEMIDE
     Indication: HYPERTENSION
  28. NYSTATIN. [Concomitant]
     Active Substance: NYSTATIN
     Indication: PROPHYLAXIS
  29. OMEPRAZOLE. [Concomitant]
     Active Substance: OMEPRAZOLE
     Indication: ANTACID THERAPY
  30. CEFOTAXIME [Concomitant]
     Active Substance: CEFOTAXIME SODIUM
     Indication: ANTIBIOTIC PROPHYLAXIS
  31. METRONIDAZOLE. [Concomitant]
     Active Substance: METRONIDAZOLE
     Indication: ANTIBIOTIC PROPHYLAXIS
  32. PARACETAMOL [Concomitant]
     Active Substance: ACETAMINOPHEN
     Indication: PAIN
  33. CEFTAZIDIME. [Concomitant]
     Active Substance: CEFTAZIDIME
     Indication: HYPERTHERMIA
  34. PHLOROGLUCINOL [Concomitant]
     Active Substance: PHLOROGLUCINOL
     Indication: ABDOMINAL PAIN

REACTIONS (1)
  - Febrile bone marrow aplasia [Recovered/Resolved]

NARRATIVE: CASE EVENT DATE: 20180208
